FAERS Safety Report 5634582-9 (Version None)
Quarter: 2008Q1

REPORT INFORMATION
  Report Type: 
  Country: None (occurrence: None)
  Receive Date: 20080131
  Receipt Date: 20071105
  Transmission Date: 20080703
  Serious: No
  Sender: FDA-Public Use
  Company Number: 2007-US-000238

PATIENT
  Age: 10 Year
  Sex: Male
  Weight: 28.8 kg

DRUGS (6)
  1. INCRELEX [Suspect]
     Indication: BODY HEIGHT BELOW NORMAL
     Dosage: 1.2 MG, BID, SUBCUTANEOUS; 2.4 MG, BID, SUBCUTANEOUS; 4.8 MG, BID, SUBCUTANEOUS
     Route: 058
     Dates: start: 20070518, end: 20070531
  2. INCRELEX [Suspect]
     Indication: BODY HEIGHT BELOW NORMAL
     Dosage: 1.2 MG, BID, SUBCUTANEOUS; 2.4 MG, BID, SUBCUTANEOUS; 4.8 MG, BID, SUBCUTANEOUS
     Route: 058
     Dates: start: 20070601, end: 20070610
  3. INCRELEX [Suspect]
     Indication: BODY HEIGHT BELOW NORMAL
     Dosage: 1.2 MG, BID, SUBCUTANEOUS; 2.4 MG, BID, SUBCUTANEOUS; 4.8 MG, BID, SUBCUTANEOUS
     Route: 058
     Dates: start: 20070611, end: 20070615
  4. CONCERTA [Concomitant]
  5. ALLEGRA /01314201/(FEXOFENADINE) [Concomitant]
  6. FLONASPRAY (FLUTICASONE PROPIONATE) [Concomitant]

REACTIONS (3)
  - BACK PAIN [None]
  - FACIAL PALSY [None]
  - GENERALISED OEDEMA [None]
